FAERS Safety Report 10055805 (Version 2)
Quarter: 2014Q2

REPORT INFORMATION
  Report Type: Spontaneous
  Country: GB (occurrence: GB)
  Receive Date: 20140403
  Receipt Date: 20140502
  Transmission Date: 20141212
  Serious: Yes (Other)
  Sender: FDA-Public Use
  Company Number: PHFR2014GB002492

PATIENT
  Age: 26 Year
  Sex: Female

DRUGS (2)
  1. VOLTAROL [Suspect]
     Indication: CHEST PAIN
     Dosage: 1 DF, ONCE/SINGLE
     Route: 065
     Dates: start: 20110331, end: 2011
  2. VOLTAROL [Suspect]
     Dosage: UNK
     Dates: start: 20110604

REACTIONS (17)
  - Staphylococcal infection [Unknown]
  - Injection site infection [Unknown]
  - Injection site reaction [Unknown]
  - Injection site necrosis [Unknown]
  - Injection site swelling [Unknown]
  - Injection site pain [Unknown]
  - Injection site inflammation [Unknown]
  - Injection site erythema [Unknown]
  - Injection site dryness [Unknown]
  - Injection site scar [Unknown]
  - Injection site abscess [Unknown]
  - Skin lesion [Unknown]
  - Pain in extremity [Unknown]
  - Full blood count abnormal [Unknown]
  - Liver function test abnormal [Unknown]
  - Fibrin D dimer increased [Unknown]
  - Peripheral swelling [Unknown]
